FAERS Safety Report 8573826-0 (Version None)
Quarter: 2012Q3

REPORT INFORMATION
  Report Type: 
  Country: None (occurrence: None)
  Receive Date: 20120806
  Receipt Date: 20110824
  Transmission Date: 20120928
  Serious: No
  Sender: FDA-Public Use
  Company Number: US-GLAXOSMITHKLINE-A0942161A

PATIENT
  Age: 81 Year
  Sex: Female

DRUGS (7)
  1. METOPROLOL TARTRATE [Concomitant]
  2. ASPIRIN [Concomitant]
  3. TYLENOL (CAPLET) [Concomitant]
  4. LORAZEPAM [Concomitant]
  5. FLUTICASONE PROPIONATE [Suspect]
     Indication: ASTHMA
     Dosage: 1PUFF SINGLE DOSE
     Route: 055
     Dates: start: 20110824
  6. METFORMIN HYDROCHLORIDE [Concomitant]
  7. ALLEGRA [Concomitant]

REACTIONS (1)
  - DIZZINESS [None]
